FAERS Safety Report 8054126-4 (Version None)
Quarter: 2012Q1

REPORT INFORMATION
  Report Type: 
  Country: None (occurrence: None)
  Receive Date: 20120118
  Receipt Date: 20120109
  Transmission Date: 20120608
  Serious: Yes (Hospitalization)
  Sender: FDA-Public Use
  Company Number: FR-ASTRAZENECA-2012SE02754

PATIENT
  Age: 29431 Day
  Sex: Male

DRUGS (11)
  1. COUMADIN [Suspect]
     Route: 048
     Dates: start: 20111003, end: 20111013
  2. PREDNISOLONE [Suspect]
     Route: 048
     Dates: start: 20111005, end: 20111009
  3. FUROSEMIDE [Concomitant]
     Route: 048
  4. ATACAND [Suspect]
     Route: 048
     Dates: end: 20111013
  5. PANTOPRAZOLE [Concomitant]
     Route: 048
  6. PRAVASTATINE SODIQUE [Concomitant]
     Route: 048
  7. COUMADIN [Suspect]
     Route: 048
     Dates: start: 20111016
  8. ASPIRIN [Suspect]
     Route: 048
     Dates: end: 20111013
  9. ASPIRIN [Suspect]
     Route: 048
     Dates: start: 20111015
  10. COUMADIN [Suspect]
     Indication: ARRHYTHMIA
     Route: 048
     Dates: end: 20110901
  11. ALLOPURINOL [Suspect]
     Route: 048
     Dates: end: 20111013

REACTIONS (2)
  - OESOPHAGEAL ULCER HAEMORRHAGE [None]
  - INTERNATIONAL NORMALISED RATIO INCREASED [None]
